FAERS Safety Report 26139485 (Version 1)
Quarter: 2025Q4

REPORT INFORMATION
  Report Type: Spontaneous
  Country: US (occurrence: None)
  Receive Date: 20251210
  Receipt Date: 20251210
  Transmission Date: 20260118
  Serious: Yes (Death, Hospitalization)
  Sender: FDA-CTU
  Company Number: None

PATIENT
  Age: 60 Year
  Sex: Male
  Weight: 68.1 kg

DRUGS (2)
  1. CYTARABINE [Suspect]
     Active Substance: CYTARABINE
     Dates: end: 20251130
  2. DAUNORUBICIN [Suspect]
     Active Substance: DAUNORUBICIN
     Dates: end: 20251126

REACTIONS (16)
  - Sepsis [None]
  - Cholecystitis acute [None]
  - Peritonitis [None]
  - Tooth extraction [None]
  - Febrile neutropenia [None]
  - Blood culture positive [None]
  - Pseudomonas infection [None]
  - Cellulitis [None]
  - Bile duct stenosis [None]
  - Tachycardia [None]
  - Tachypnoea [None]
  - Hypotension [None]
  - Oesophageal disorder [None]
  - Pneumatosis [None]
  - Gastrointestinal disorder [None]
  - Gastrointestinal wall thickening [None]

NARRATIVE: CASE EVENT DATE: 20251206
